FAERS Safety Report 9747048 (Version 1)
Quarter: 2013Q4

REPORT INFORMATION
  Report Type: Spontaneous
  Country: GB (occurrence: GB)
  Receive Date: 20131211
  Receipt Date: 20131211
  Transmission Date: 20140711
  Serious: Yes (Hospitalization)
  Sender: FDA-Public Use
  Company Number: GB-009507513-1312GBR001761

PATIENT
  Age: 67 Year
  Sex: Male

DRUGS (3)
  1. CARBIDOPA (+) LEVODOPA [Suspect]
     Indication: PARKINSON^S DISEASE
     Dosage: UNK UNK, 5 TIMES PER DAY
     Route: 048
  2. ROPINIROLE [Suspect]
     Indication: PARKINSON^S DISEASE
     Dosage: 4 MG, QD
  3. SELEGILINE [Suspect]
     Dosage: 10 MG, QD

REACTIONS (3)
  - Labile blood pressure [Recovering/Resolving]
  - Orthostatic hypotension [Recovering/Resolving]
  - Incorrect route of drug administration [Unknown]
